FAERS Safety Report 25925217 (Version 4)
Quarter: 2025Q4

REPORT INFORMATION
  Report Type: Report from Study
  Country: IN (occurrence: IN)
  Receive Date: 20251015
  Receipt Date: 20251214
  Transmission Date: 20260118
  Serious: Yes (Hospitalization, Other)
  Sender: PFIZER
  Company Number: IN-PFIZER INC-PV202500121462

PATIENT
  Age: 59 Year
  Sex: Male

DRUGS (1)
  1. CRIZOTINIB [Suspect]
     Active Substance: CRIZOTINIB
     Indication: Non-small cell lung cancer metastatic
     Dosage: 250 MG, 2X/DAY
     Route: 048
     Dates: end: 202407

REACTIONS (3)
  - Pneumonia viral [Unknown]
  - Lower respiratory tract infection [Recovered/Resolved]
  - Peripheral swelling [Unknown]
